FAERS Safety Report 23398393 (Version 1)
Quarter: 2024Q1

REPORT INFORMATION
  Report Type: Spontaneous
  Country: US (occurrence: None)
  Receive Date: 20240112
  Receipt Date: 20240112
  Transmission Date: 20240410
  Serious: Yes (Hospitalization)
  Sender: FDA-Public Use
  Company Number: None

PATIENT
  Age: 60 Year
  Sex: Male

DRUGS (4)
  1. PRASUGREL [Suspect]
     Active Substance: PRASUGREL
     Indication: Stent placement
     Dosage: FREQUENCY : DAILY;?
     Route: 048
     Dates: start: 20231003, end: 20240111
  2. FLECAINIDE ACETATE [Suspect]
     Active Substance: FLECAINIDE ACETATE
     Indication: Wrong drug
     Dosage: FREQUENCY : DAILY;?
     Route: 048
     Dates: start: 20231004, end: 20240110
  3. PRASUGREL [Concomitant]
     Active Substance: PRASUGREL
     Dates: start: 20231003
  4. FLECAINIDE [Concomitant]
     Active Substance: FLECAINIDE
     Dates: start: 20231003, end: 20240110

REACTIONS (4)
  - Product dispensing error [None]
  - Product dispensing error [None]
  - Product label confusion [None]
  - Product packaging confusion [None]

NARRATIVE: CASE EVENT DATE: 20231023
